FAERS Safety Report 10540148 (Version 1)
Quarter: 2014Q4

REPORT INFORMATION
  Report Type: Spontaneous
  Country: SE (occurrence: None)
  Receive Date: 20141022
  Receipt Date: 20141022
  Transmission Date: 20150529
  Serious: Yes (Other)
  Sender: FDA-Public Use
  Company Number: PR 1785

PATIENT
  Age: 73 Year
  Sex: Female

DRUGS (1)
  1. COSOPT [Suspect]
     Active Substance: DORZOLAMIDE HYDROCHLORIDE\TIMOLOL MALEATE
     Indication: GLAUCOMA
     Dates: start: 200910, end: 200910

REACTIONS (2)
  - Cardiac disorder [None]
  - Heart rate decreased [None]

NARRATIVE: CASE EVENT DATE: 20090410
